FAERS Safety Report 23243214 (Version 2)
Quarter: 2023Q4

REPORT INFORMATION
  Report Type: Report from Study
  Country: JP (occurrence: JP)
  Receive Date: 20231130
  Receipt Date: 20231204
  Transmission Date: 20240110
  Serious: Yes (Other)
  Sender: FDA-Public Use
  Company Number: JP-ALXN-A202211399

PATIENT
  Age: 51 Year
  Sex: Female
  Weight: 76 kg

DRUGS (14)
  1. SOLIRIS [Suspect]
     Active Substance: ECULIZUMAB
     Indication: Neuromyelitis optica spectrum disorder
     Dosage: 900 MILLIGRAM, QW
     Route: 042
     Dates: start: 20220301, end: 20220322
  2. SOLIRIS [Suspect]
     Active Substance: ECULIZUMAB
     Dosage: 1200 MILLIGRAM, Q2W
     Route: 042
     Dates: start: 20220329
  3. PREDONINE [Concomitant]
     Active Substance: PREDNISOLONE
     Indication: Neuromyelitis optica spectrum disorder
     Dosage: 8 MILLIGRAM, QD
     Route: 048
     Dates: start: 20190827, end: 20191007
  4. PREDONINE [Concomitant]
     Active Substance: PREDNISOLONE
     Dosage: 7 MILLIGRAM, QD
     Route: 048
     Dates: start: 20191008, end: 20191125
  5. PREDONINE [Concomitant]
     Active Substance: PREDNISOLONE
     Dosage: 6 MILLIGRAM, QD
     Route: 048
     Dates: start: 20191126, end: 20200113
  6. PREDONINE [Concomitant]
     Active Substance: PREDNISOLONE
     Dosage: 5 MILLIGRAM, QD
     Route: 048
     Dates: start: 20200114
  7. IMURAN                             /00001501/ [Concomitant]
     Indication: Neuromyelitis optica spectrum disorder
     Dosage: 50 MILLIGRAM, QD
     Route: 048
     Dates: start: 20190130, end: 20220620
  8. IMURAN                             /00001501/ [Concomitant]
     Dosage: 25 MILLIGRAM, QD
     Route: 048
     Dates: start: 20220621, end: 20220718
  9. SULFAMETHOXAZOLE\TRIMETHOPRIM [Concomitant]
     Active Substance: SULFAMETHOXAZOLE\TRIMETHOPRIM
     Indication: Prophylaxis
     Dosage: 1 DOSAGE FORM, QD
     Route: 048
     Dates: start: 20181020
  10. ALENDRONATE SODIUM [Concomitant]
     Active Substance: ALENDRONATE SODIUM
     Indication: Prophylaxis
     Dosage: 35 MILLIGRAM, QW
     Route: 048
     Dates: start: 20181020
  11. CALONAL [Concomitant]
     Active Substance: ACETAMINOPHEN
     Indication: Neuromyelitis optica spectrum disorder
     Dosage: 400 MILLIGRAM, BID
     Route: 048
     Dates: start: 20181022
  12. ATORVASTATIN                       /01326106/ [Concomitant]
     Indication: Dyslipidaemia
     Dosage: 10 MILLIGRAM, QD
     Route: 048
     Dates: start: 20190203
  13. BEZAFIBRATE [Concomitant]
     Active Substance: BEZAFIBRATE
     Indication: Dyslipidaemia
     Dosage: 200 MILLIGRAM, BID
     Route: 048
     Dates: start: 20190108
  14. PREGABALIN [Concomitant]
     Active Substance: PREGABALIN
     Indication: Neuromyelitis optica spectrum disorder
     Dosage: 150 MILLIGRAM, BID
     Route: 048
     Dates: start: 20181206

REACTIONS (2)
  - Nephrotic syndrome [Unknown]
  - Oedema peripheral [Recovered/Resolved]

NARRATIVE: CASE EVENT DATE: 20220511
